FAERS Safety Report 18697724 (Version 1)
Quarter: 2021Q1

REPORT INFORMATION
  Report Type: Spontaneous
  Country: IT (occurrence: IT)
  Receive Date: 20210105
  Receipt Date: 20210105
  Transmission Date: 20210419
  Serious: Yes (Hospitalization, Other)
  Sender: FDA-Public Use
  Company Number: IT-AUROBINDO-AUR-APL-2020-064148

PATIENT
  Age: 81 Year
  Sex: Female

DRUGS (1)
  1. MEMANTINE FILM?COATED TABLETS [Suspect]
     Active Substance: MEMANTINE
     Indication: DEMENTIA
     Dosage: 40 MILLIGRAM, ONCE A DAY
     Route: 048
     Dates: start: 20201204, end: 20201221

REACTIONS (3)
  - Depressed level of consciousness [Recovering/Resolving]
  - Wrong dose [Recovering/Resolving]
  - Medication error [Recovering/Resolving]

NARRATIVE: CASE EVENT DATE: 20201221
